FAERS Safety Report 11021766 (Version 4)
Quarter: 2017Q2

REPORT INFORMATION
  Report Type: Report from Study
  Country: DE (occurrence: DE)
  Receive Date: 20150413
  Receipt Date: 20170424
  Transmission Date: 20170829
  Serious: Yes (Hospitalization)
  Sender: FDA-Public Use
  Company Number: DE-ROCHE-1550514

PATIENT
  Age: 64 Year
  Sex: Female
  Weight: 60 kg

DRUGS (11)
  1. PERTUZUMAB [Suspect]
     Active Substance: PERTUZUMAB
     Dosage: MAINTANANCE DOSE?LAST DOSE PRIOR TO SAE: 19/MAR/2015
     Route: 042
     Dates: start: 20150319, end: 20150409
  2. PERTUZUMAB [Suspect]
     Active Substance: PERTUZUMAB
     Dosage: MAINTANANCE DOSE?LAST DOSE PRIOR TO SECOND EPISODE OF FEVER: 13/MAY/2015?THERAPY RESTARTED
     Route: 042
     Dates: end: 20150603
  3. TRASTUZUMAB [Suspect]
     Active Substance: TRASTUZUMAB
     Dosage: LAST DOSE PRIOR TO SAE: 13/MAY/2015?THERAPY RESTARTED?MAINTENANCE DOSE
     Route: 042
     Dates: end: 20150603
  4. TRASTUZUMAB [Suspect]
     Active Substance: TRASTUZUMAB
     Dosage: LAST DOSE PRIOR TO SAE DIARRHEA: 19/MAR/2015?MAINTENANCE DOSE
     Route: 042
     Dates: start: 20150319, end: 20150409
  5. PERTUZUMAB [Suspect]
     Active Substance: PERTUZUMAB
     Indication: HER-2 POSITIVE BREAST CANCER
     Dosage: LOADING DOSE
     Route: 042
     Dates: start: 20150226, end: 20150226
  6. PACLITAXEL. [Suspect]
     Active Substance: PACLITAXEL
     Dosage: LAST DOSE PRIOR TO SECOND EPISODE OF FEVER: 13/MAY/2015?THERAPY RESTARTED
     Route: 042
     Dates: end: 20150603
  7. DOXORUBICIN HYDROCHLORIDE. [Suspect]
     Active Substance: DOXORUBICIN HYDROCHLORIDE
     Indication: HER-2 POSITIVE BREAST CANCER
     Route: 042
     Dates: start: 20150226, end: 20150409
  8. TRASTUZUMAB [Suspect]
     Active Substance: TRASTUZUMAB
     Indication: HER-2 POSITIVE BREAST CANCER
     Dosage: LOADING DOSE: 8 MG/KG
     Route: 042
     Dates: start: 20150226, end: 20150226
  9. DOXORUBICIN HYDROCHLORIDE. [Suspect]
     Active Substance: DOXORUBICIN HYDROCHLORIDE
     Dosage: LAST DOSE PRIOR TO SAE: 13/MAY/2015
     Route: 042
     Dates: end: 20150603
  10. PACLITAXEL. [Suspect]
     Active Substance: PACLITAXEL
     Indication: HER-2 POSITIVE BREAST CANCER
     Dosage: LAST DOSE PRIOR TO SAE: 02/APR/2015
     Route: 042
     Dates: start: 20150226, end: 20150409
  11. CIPROFLOXACIN. [Concomitant]
     Active Substance: CIPROFLOXACIN
     Route: 065
     Dates: start: 20150416, end: 20150420

REACTIONS (3)
  - Diarrhoea [Recovered/Resolved]
  - General physical health deterioration [Not Recovered/Not Resolved]
  - Pyrexia [Recovered/Resolved]

NARRATIVE: CASE EVENT DATE: 20150227
